FAERS Safety Report 13922664 (Version 1)
Quarter: 2017Q3

REPORT INFORMATION
  Report Type: Spontaneous
  Country: FR (occurrence: FR)
  Receive Date: 20170830
  Receipt Date: 20170830
  Transmission Date: 20171127
  Serious: Yes (Hospitalization)
  Sender: FDA-Public Use
  Company Number: FR-LUNDBECK-DKLU2036382

PATIENT
  Age: 57 Year
  Sex: Male

DRUGS (8)
  1. LAROXYL [Suspect]
     Active Substance: AMITRIPTYLINE
     Route: 048
     Dates: end: 20170712
  2. URBANYL [Suspect]
     Active Substance: CLOBAZAM
     Indication: POISONING DELIBERATE
     Route: 048
     Dates: start: 20170712, end: 20170712
  3. SEROPLEX FILM-COATED TABLETS [Concomitant]
     Indication: AFFECTIVE DISORDER
     Route: 065
     Dates: end: 20170712
  4. LAROXYL [Suspect]
     Active Substance: AMITRIPTYLINE
     Indication: POISONING DELIBERATE
     Route: 048
     Dates: start: 20170712, end: 20170712
  5. NOCTAMIDE [Suspect]
     Active Substance: LORMETAZEPAM
     Route: 048
     Dates: end: 20170712
  6. URBANYL [Suspect]
     Active Substance: CLOBAZAM
     Route: 048
  7. LAMOTRIGINE. [Concomitant]
     Active Substance: LAMOTRIGINE
     Indication: PRODUCT USED FOR UNKNOWN INDICATION
     Route: 065
  8. NOCTAMIDE [Suspect]
     Active Substance: LORMETAZEPAM
     Indication: POISONING DELIBERATE
     Route: 048
     Dates: start: 20170712, end: 20170712

REACTIONS (5)
  - Coma [Recovered/Resolved]
  - Seizure [Recovered/Resolved]
  - Cardio-respiratory arrest [Recovered/Resolved]
  - Cardiogenic shock [Recovered/Resolved]
  - Intentional overdose [Recovered/Resolved]

NARRATIVE: CASE EVENT DATE: 20170712
